FAERS Safety Report 7373742-6 (Version None)
Quarter: 2011Q1

REPORT INFORMATION
  Report Type: 
  Country: None (occurrence: None)
  Receive Date: 20110325
  Receipt Date: 20110314
  Transmission Date: 20110831
  Serious: Yes (Other)
  Sender: FDA-Public Use
  Company Number: US-JNJFOC-20110205234

PATIENT
  Sex: Female
  Weight: 49.44 kg

DRUGS (8)
  1. DEPAKOTE [Concomitant]
     Indication: CONVULSION
     Dosage: AT BEDTIME
     Route: 048
  2. REMERON [Concomitant]
     Indication: DEPRESSION
     Route: 048
  3. DURAGESIC-50 [Suspect]
     Indication: BACK PAIN
     Route: 062
  4. OXYCODONE [Concomitant]
     Indication: BREAKTHROUGH PAIN
     Dosage: SIX IN AM
     Route: 048
  5. TRAZODONE [Concomitant]
     Dosage: 1 AT BEDTIME AS NEEDED
     Route: 048
  6. DURAGESIC-50 [Suspect]
     Indication: ILL-DEFINED DISORDER
     Route: 062
  7. TRAZODONE [Concomitant]
     Indication: SLEEP DISORDER THERAPY
     Dosage: 2 AT BEDTIME
     Route: 048
  8. XANAX [Concomitant]
     Indication: NERVOUS SYSTEM DISORDER
     Dosage: AS NEEDED
     Route: 048

REACTIONS (11)
  - ADVERSE EVENT [None]
  - BACK PAIN [None]
  - NASOPHARYNGITIS [None]
  - TREMOR [None]
  - DEPRESSION [None]
  - WITHDRAWAL SYNDROME [None]
  - OROPHARYNGEAL PAIN [None]
  - FEELING ABNORMAL [None]
  - REHABILITATION THERAPY [None]
  - COLITIS ULCERATIVE [None]
  - HAEMORRHAGE [None]
